FAERS Safety Report 11832484 (Version 3)
Quarter: 2016Q2

REPORT INFORMATION
  Report Type: Spontaneous
  Country: US (occurrence: US)
  Receive Date: 20151214
  Receipt Date: 20160526
  Transmission Date: 20160815
  Serious: No
  Sender: FDA-Public Use
  Company Number: US-PFIZER INC-2015334150

PATIENT
  Age: 74 Year
  Sex: Female

DRUGS (22)
  1. LEVOTHYROXINE SODIUM. [Concomitant]
     Active Substance: LEVOTHYROXINE SODIUM
     Dosage: 137 UG, DAILY
     Route: 048
  2. ZOLPIDEM TARTRATE. [Concomitant]
     Active Substance: ZOLPIDEM TARTRATE
     Dosage: 5 MG , DAILY (10MG TABLET 1/2 (ORAL) AT BEDTIME)
     Route: 048
  3. PRAVASTATIN SODIUM. [Concomitant]
     Active Substance: PRAVASTATIN SODIUM
     Dosage: 20 MG, DAILY
     Route: 048
  4. VOLTAREN [Concomitant]
     Active Substance: DICLOFENAC SODIUM
     Dosage: 1 %, 4X/DAY(4G GEL (TRANSDERMAL) APPLY TO AFFECTED AREA UPTO FOUR TIMES DAILY AS N FOR 30 DAY)
     Route: 062
     Dates: start: 20160419
  5. DULOXETINE HCL [Concomitant]
     Active Substance: DULOXETINE HYDROCHLORIDE
     Dosage: 60 MG, DAILY
     Route: 048
  6. VITAMIN D [Concomitant]
     Active Substance: CHOLECALCIFEROL
     Dosage: 1000 IU, 3X/DAY (3 (ORAL) DAILY)
     Route: 048
  7. ALBUTEROL SULFATE. [Concomitant]
     Active Substance: ALBUTEROL SULFATE
     Dosage: UNK UNK, AS NEEDED ((2.5 MG/3ML) 0.083% (1 INHALATION) EVERY 4-8 HOURS, PRN)
  8. NASACORT AQ [Concomitant]
     Active Substance: TRIAMCINOLONE ACETONIDE
     Dosage: 55 UG, UNK (2 SPRAYS EACH NOSTRIL (NASAL) DALLY)
     Route: 045
  9. LYRICA [Suspect]
     Active Substance: PREGABALIN
     Indication: PAIN
     Dosage: 150 MG, 3X/DAY
     Route: 048
     Dates: start: 20160419
  10. LYRICA [Suspect]
     Active Substance: PREGABALIN
     Indication: LUMBAR RADICULOPATHY
  11. CYMBALTA [Concomitant]
     Active Substance: DULOXETINE HYDROCHLORIDE
     Dosage: 30 MG, DAILY (1 (ONE) CAPSULE OR PART (ORAL) DAILY FOR 30 DAYS)
     Route: 048
     Dates: start: 20160419
  12. TIZANIDINE HCL [Concomitant]
     Active Substance: TIZANIDINE HYDROCHLORIDE
     Indication: MUSCLE SPASMS
     Dosage: 4 MG, AS (DOSAGE 1 (ONE) TABLET (ORAL) THREE TIMES DAILY, AS NEEDED)
     Route: 048
     Dates: start: 20160419
  13. OMEPRAZOLE. [Concomitant]
     Active Substance: OMEPRAZOLE
     Dosage: 40 MG, DAILY
     Route: 048
  14. VESICARE [Concomitant]
     Active Substance: SOLIFENACIN SUCCINATE
     Dosage: 5 MG, DAILY
     Route: 048
  15. PERCOCET [Concomitant]
     Active Substance: ACETAMINOPHEN\OXYCODONE HYDROCHLORIDE
     Dosage: UNK(OXYCODONE HYDROCHLORIDE 5MG, PARACETAMOL-325 DOSAGE 1 (ONE) TABLET (ORAL) THREE TIMES DAILY
     Route: 048
     Dates: start: 20160419
  16. LYRICA [Suspect]
     Active Substance: PREGABALIN
     Indication: FIBROMYALGIA
     Dosage: UNK UNK, 2X/DAY
     Route: 048
  17. LYRICA [Suspect]
     Active Substance: PREGABALIN
     Indication: ARTHRITIS
     Dosage: UNK
  18. LABETALOL HCL [Concomitant]
     Active Substance: LABETALOL HYDROCHLORIDE
     Dosage: 300 MG, 2X/DAY (EVERY TWELVE HOURS)
     Route: 048
  19. FLOVENT HFA [Concomitant]
     Active Substance: FLUTICASONE PROPIONATE
     Dosage: 220 UG, UNK (1 INHALATION AS DIRECTED)
  20. AMLODIPINE BESYLATE. [Concomitant]
     Active Substance: AMLODIPINE BESYLATE
     Dosage: 2.5 MG, DAILY
     Route: 048
  21. SERTRALINE HCL [Concomitant]
     Active Substance: SERTRALINE HYDROCHLORIDE
     Dosage: 50 MG, DAILY
     Route: 048
     Dates: start: 20160114
  22. PERCOCET [Concomitant]
     Active Substance: ACETAMINOPHEN\OXYCODONE HYDROCHLORIDE
     Indication: PAIN
     Dosage: (OXYCODONE HYDROCHLORIDE 5MG, PARACETAMOL-325 DOSAGE 1 (ONE) TABLET (ORAL) THREE TIMES DAILY
     Route: 048
     Dates: start: 20160123

REACTIONS (3)
  - Drug effect incomplete [Unknown]
  - Drug ineffective for unapproved indication [Unknown]
  - Drug prescribing error [Unknown]
